FAERS Safety Report 20378228 (Version 1)
Quarter: 2022Q1

REPORT INFORMATION
  Report Type: Spontaneous
  Country: US (occurrence: None)
  Receive Date: 20220125
  Receipt Date: 20220125
  Transmission Date: 20220424
  Serious: No
  Sender: FDA-Public Use
  Company Number: None

PATIENT
  Age: 48 Year
  Sex: Female
  Weight: 106.59 kg

DRUGS (4)
  1. RASUVO [Suspect]
     Active Substance: METHOTREXATE SODIUM
     Indication: Psoriasis
     Dosage: OTHER FREQUENCY : SAME DAY EACH WK;?INJECT 20MG (0.4ML) SUBCUTANEOUSLY ONCE WEEKLY ON?THE SAME DAY E
     Route: 058
     Dates: start: 202011
  2. RASUVO [Suspect]
     Active Substance: METHOTREXATE SODIUM
     Indication: Psoriatic arthropathy
  3. TREMFYA [Suspect]
     Active Substance: GUSELKUMAB
     Indication: Psoriasis
     Dosage: FREQUENCY : AS DIRECTED; INJECT 100MG SUBCUTANEOUSLY ON WEEK 0 AND WEEK 4 AS?DIRECTED.??
     Route: 058
     Dates: start: 202011
  4. TREMFYA [Suspect]
     Active Substance: GUSELKUMAB
     Indication: Psoriatic arthropathy

REACTIONS (2)
  - COVID-19 [None]
  - Therapy interrupted [None]
